FAERS Safety Report 6895040-7 (Version None)
Quarter: 2010Q3

REPORT INFORMATION
  Report Type: 
  Country: None (occurrence: None)
  Receive Date: 20100730
  Receipt Date: 20100730
  Transmission Date: 20110219
  Serious: Yes (Hospitalization)
  Sender: FDA-Public Use
  Company Number: None

PATIENT
  Age: 46 Year
  Sex: Male
  Weight: 76.8 kg

DRUGS (2)
  1. SULFAMETHOXAZOLE AND TRIMETHOPRIM [Suspect]
     Indication: INFECTION
     Dosage: 1 TAB BID PO
     Route: 048
     Dates: start: 20100604, end: 20100607
  2. CEPHALEXIN [Suspect]
     Indication: INFECTION
     Dosage: 250 MG QID PO
     Route: 048
     Dates: start: 20100604, end: 20100607

REACTIONS (9)
  - CHEST WALL ABSCESS [None]
  - CHILLS [None]
  - DRY MOUTH [None]
  - NAUSEA [None]
  - OROPHARYNGEAL PAIN [None]
  - PYREXIA [None]
  - RASH GENERALISED [None]
  - SCARLET FEVER [None]
  - TACHYCARDIA [None]
